FAERS Safety Report 5379028-3 (Version None)
Quarter: 2007Q2

REPORT INFORMATION
  Report Type: 
  Country: None (occurrence: None)
  Receive Date: 20070619
  Receipt Date: 20070604
  Transmission Date: 20071010
  Serious: Yes (Hospitalization, Other)
  Sender: FDA-Public Use
  Company Number: AEUSA200700138

PATIENT
  Age: 8 Year
  Sex: Female

DRUGS (3)
  1. GAMUNEX [Suspect]
     Indication: COMBINED IMMUNODEFICIENCY
     Dosage: 12.5 GM; Q3W; IV
     Route: 042
     Dates: start: 20070514, end: 20070604
  2. IRON [Concomitant]
  3. LEUCOVORIN CALCIUM [Concomitant]

REACTIONS (7)
  - COUGH [None]
  - FLUSHING [None]
  - HYPOTENSION [None]
  - OXYGEN SATURATION DECREASED [None]
  - SEPSIS [None]
  - THROAT IRRITATION [None]
  - THROAT TIGHTNESS [None]
